FAERS Safety Report 17450165 (Version 1)
Quarter: 2020Q1

REPORT INFORMATION
  Report Type: Spontaneous
  Country: US (occurrence: US)
  Receive Date: 20200209
  Receipt Date: 20200209
  Transmission Date: 20200409
  Serious: Yes (Hospitalization, Other)
  Sender: FDA-Public Use
  Company Number: None

PATIENT
  Age: 70 Year
  Sex: Male
  Weight: 62.5 kg

DRUGS (1)
  1. GLECAPREVIR/PIBRENTASVIR 100-40 [Suspect]
     Active Substance: GLECAPREVIR\PIBRENTASVIR
     Indication: HEPATITIS C
     Dosage: ?          OTHER DOSE:400-120 MG;?
     Route: 048
     Dates: start: 20200120

REACTIONS (8)
  - Hepatic cirrhosis [None]
  - Condition aggravated [None]
  - Alcohol use disorder [None]
  - Jaundice [None]
  - Ascites [None]
  - Oedema peripheral [None]
  - Ill-defined disorder [None]
  - Pancytopenia [None]

NARRATIVE: CASE EVENT DATE: 20200120
